FAERS Safety Report 7341553-3 (Version None)
Quarter: 2011Q1

REPORT INFORMATION
  Report Type: 
  Country: None (occurrence: None)
  Receive Date: 20110309
  Receipt Date: 20110301
  Transmission Date: 20110831
  Serious: Yes (Hospitalization, Other)
  Sender: FDA-Public Use
  Company Number: GB-GENZYME-THYM-1002329

PATIENT
  Sex: Female

DRUGS (8)
  1. EPREX [Concomitant]
     Indication: RENAL FAILURE CHRONIC
     Dosage: 10000 U, QD
     Route: 065
  2. COTRIM [Concomitant]
     Indication: RENAL FAILURE CHRONIC
     Dosage: 480 MG, BID
     Route: 065
  3. THYMOGLOBULIN [Suspect]
     Indication: RENAL TRANSPLANT
     Dosage: 75 MG/KG, QD
     Route: 042
     Dates: start: 20110216, end: 20110217
  4. MYFORTIC [Concomitant]
     Indication: RENAL FAILURE CHRONIC
     Dosage: 480 MG, BID
     Route: 065
  5. THYMOGLOBULIN [Suspect]
     Dosage: UNK
     Route: 042
     Dates: start: 20110219
  6. AMLODIPINE [Concomitant]
     Indication: HYPERTENSION
     Dosage: 10 MG, QD
     Route: 065
  7. VALGANCICLOVIR [Concomitant]
     Indication: RENAL FAILURE CHRONIC
     Dosage: 900 MG, UNK
     Route: 065
  8. LEVOTHYROXINE [Concomitant]
     Indication: HYPOTHYROIDISM
     Dosage: 100 MCG, QD
     Route: 065

REACTIONS (6)
  - URINARY TRACT INFECTION [None]
  - GASTRITIS [None]
  - DUODENITIS [None]
  - OVERDOSE [None]
  - OESOPHAGITIS [None]
  - HAEMATURIA [None]
